FAERS Safety Report 8113081-9 (Version None)
Quarter: 2012Q1

REPORT INFORMATION
  Report Type: 
  Country: None (occurrence: None)
  Receive Date: 20120203
  Receipt Date: 20120126
  Transmission Date: 20120608
  Serious: Yes (Hospitalization)
  Sender: FDA-Public Use
  Company Number: FR-GLAXOSMITHKLINE-B0778312A

PATIENT
  Age: 59 Year
  Sex: Female
  Weight: 77 kg

DRUGS (4)
  1. ZOFRAN [Concomitant]
  2. LAPATINIB [Suspect]
     Indication: BREAST CANCER METASTATIC
     Route: 048
     Dates: start: 20110222, end: 20111115
  3. PRIMPERAN TAB [Concomitant]
  4. XELODA [Suspect]
     Indication: BREAST CANCER METASTATIC
     Dates: end: 20111115

REACTIONS (2)
  - FALL [None]
  - DISEASE PROGRESSION [None]
